FAERS Safety Report 9044915 (Version 3)
Quarter: 2013Q4

REPORT INFORMATION
  Report Type: Report from Study
  Country: JP (occurrence: JP)
  Receive Date: 20130130
  Receipt Date: 20131120
  Transmission Date: 20140711
  Serious: Yes (Other)
  Sender: FDA-Public Use
  Company Number: JP-GLAXOSMITHKLINE-B0860744A

PATIENT
  Age: 49 Year
  Sex: Female

DRUGS (11)
  1. REVOLADE [Suspect]
     Indication: IMMUNE THROMBOCYTOPENIC PURPURA
     Route: 048
     Dates: start: 20110216, end: 20110318
  2. REVOLADE [Suspect]
     Indication: IMMUNE THROMBOCYTOPENIC PURPURA
     Route: 048
     Dates: start: 20110319, end: 20110506
  3. REVOLADE [Suspect]
     Indication: IMMUNE THROMBOCYTOPENIC PURPURA
     Route: 048
     Dates: start: 20110507, end: 20110603
  4. REVOLADE [Suspect]
     Indication: IMMUNE THROMBOCYTOPENIC PURPURA
     Route: 048
     Dates: start: 20110604, end: 20110617
  5. REVOLADE [Suspect]
     Indication: IMMUNE THROMBOCYTOPENIC PURPURA
     Route: 048
     Dates: start: 20110618
  6. PREDONINE [Concomitant]
     Indication: IMMUNE THROMBOCYTOPENIC PURPURA
     Route: 048
  7. ADONA (AC-17) [Concomitant]
     Route: 048
  8. CINAL [Concomitant]
     Route: 048
  9. ZANTAC [Concomitant]
     Indication: PROPHYLAXIS
     Route: 048
  10. GLAKAY [Concomitant]
     Indication: PROPHYLAXIS
     Route: 048
  11. THYRADIN [Concomitant]
     Route: 048

REACTIONS (5)
  - Basedow^s disease [Recovering/Resolving]
  - Alanine aminotransferase increased [Recovered/Resolved]
  - Hepatic function abnormal [Recovered/Resolved]
  - Hyperthyroidism [Unknown]
  - Malaise [Unknown]
